FAERS Safety Report 10369394 (Version 2)
Quarter: 2014Q3

REPORT INFORMATION
  Report Type: Report from Study
  Country: CA (occurrence: CA)
  Receive Date: 20140807
  Receipt Date: 20140910
  Transmission Date: 20150326
  Serious: Yes (Hospitalization, Other)
  Sender: FDA-Public Use
  Company Number: CA-BIOMARINAP-CA-2014-103800

PATIENT
  Age: 7 Year
  Sex: Female
  Weight: 29.6 kg

DRUGS (2)
  1. SAPROPTERIN DIHYDROCHLORIDE [Suspect]
     Active Substance: SAPROPTERIN DIHYDROCHLORIDE
     Indication: PHENYLKETONURIA
     Dosage: 600 MG, QD
     Route: 048
     Dates: start: 20100511
  2. MULTIVITAMINS, COMBINATIONS [Concomitant]
     Indication: NUTRITIONAL SUPPLEMENTATION
     Dosage: UNK, QD
     Route: 048
     Dates: start: 20140421

REACTIONS (1)
  - Convulsion [Recovered/Resolved]

NARRATIVE: CASE EVENT DATE: 20140525
